FAERS Safety Report 17103554 (Version 1)
Quarter: 2019Q4

REPORT INFORMATION
  Report Type: Spontaneous
  Country: US (occurrence: US)
  Receive Date: 20191202
  Receipt Date: 20191202
  Transmission Date: 20200122
  Serious: Yes (Hospitalization)
  Sender: FDA-Public Use
  Company Number: None

PATIENT
  Age: 80 Year
  Sex: Male
  Weight: 89.4 kg

DRUGS (7)
  1. DABIGATRAN [Suspect]
     Active Substance: DABIGATRAN
     Indication: ATRIAL FIBRILLATION
     Route: 048
     Dates: start: 20121227
  2. LISINOPRIL 10MG DAILY [Concomitant]
  3. CARVEDILOL 6.25MG BID [Concomitant]
  4. CLONIDINE 0.1MG BID [Concomitant]
  5. ESCITALOPRAM 10MG DAILY [Concomitant]
  6. ASPIRIN. [Suspect]
     Active Substance: ASPIRIN
     Route: 054
     Dates: start: 20121227
  7. PANTOPRAZOLE 40MG DAILY [Concomitant]

REACTIONS (7)
  - Lethargy [None]
  - Fall [None]
  - Subarachnoid haemorrhage [None]
  - Brain contusion [None]
  - Subdural haematoma [None]
  - Confusional state [None]
  - Craniofacial fracture [None]

NARRATIVE: CASE EVENT DATE: 20151126
